FAERS Safety Report 6639274-5 (Version None)
Quarter: 2010Q1

REPORT INFORMATION
  Report Type: 
  Country: None (occurrence: None)
  Receive Date: 20100315
  Receipt Date: 20100225
  Transmission Date: 20100710
  Serious: Yes (Death)
  Sender: FDA-Public Use
  Company Number: 2010VX000112

PATIENT
  Age: 48 Year
  Sex: Female

DRUGS (10)
  1. ACETAMINOPHEN AND CODEINE PHOSPHATE [Suspect]
     Indication: DRUG USE FOR UNKNOWN INDICATION
  2. AMITRIPTYLINE [Suspect]
     Indication: DRUG USE FOR UNKNOWN INDICATION
  3. ACETAMINOPHEN W/ PROPOXYPHENE HCL [Suspect]
     Indication: DRUG USE FOR UNKNOWN INDICATION
  4. LORAZEPAM [Suspect]
     Indication: DRUG USE FOR UNKNOWN INDICATION
  5. TRAZODONE [Suspect]
     Indication: DRUG USE FOR UNKNOWN INDICATION
  6. PROPOXYPHENE HCL AND ACETAMINOPHEN [Concomitant]
  7. TRAZODONE [Concomitant]
  8. AMITRIPTYLINE [Concomitant]
  9. LORAZEPAM [Concomitant]
  10. ACETAMINOPHEN W/ CODEINE [Concomitant]

REACTIONS (7)
  - CARDIAC ARREST [None]
  - COMPLETED SUICIDE [None]
  - HYPOTENSION [None]
  - MYDRIASIS [None]
  - POISONING [None]
  - TACHYCARDIA [None]
  - UNRESPONSIVE TO STIMULI [None]
